FAERS Safety Report 16530688 (Version 1)
Quarter: 2019Q3

REPORT INFORMATION
  Report Type: Spontaneous
  Country: US (occurrence: US)
  Receive Date: 20190523
  Receipt Date: 20190523
  Transmission Date: 20191004
  Serious: No
  Sender: FDA-Public Use
  Company Number: None

PATIENT
  Age: 70 Year
  Sex: Male
  Weight: 58.97 kg

DRUGS (6)
  1. FIRMAGON [Suspect]
     Active Substance: DEGARELIX ACETATE
     Indication: PROSTATE CANCER
     Route: 057
     Dates: start: 201803
  2. XGEVA [Suspect]
     Active Substance: DENOSUMAB
     Indication: PROSTATE CANCER
     Route: 058
     Dates: start: 201803
  3. XGEVA [Suspect]
     Active Substance: DENOSUMAB
     Indication: BONE CANCER
     Route: 058
     Dates: start: 201803
  4. FIRMAGON [Suspect]
     Active Substance: DEGARELIX ACETATE
     Indication: BONE CANCER
     Route: 057
     Dates: start: 201803
  5. XGEVA [Suspect]
     Active Substance: DENOSUMAB
     Indication: BONE DENSITY ABNORMAL
     Route: 058
     Dates: start: 201803
  6. FIRMAGON [Suspect]
     Active Substance: DEGARELIX ACETATE
     Indication: BONE DENSITY ABNORMAL
     Route: 057
     Dates: start: 201803

REACTIONS (1)
  - Multiple sclerosis [None]
